FAERS Safety Report 5744962-9 (Version None)
Quarter: 2008Q2

REPORT INFORMATION
  Report Type: 
  Country: None (occurrence: None)
  Receive Date: 20080521
  Receipt Date: 20080512
  Transmission Date: 20081010
  Serious: Yes (Hospitalization)
  Sender: FDA-Public Use
  Company Number: US-JNJFOC-20080502937

PATIENT
  Sex: Female
  Weight: 68.04 kg

DRUGS (13)
  1. DURAGESIC-100 [Suspect]
     Route: 062
  2. DURAGESIC-100 [Suspect]
     Dosage: 1 X 100 UG/HR AND 1 X 25 UG/HR PATCHES
     Route: 062
  3. DURAGESIC-100 [Suspect]
     Dosage: 1 X 100 UG/HR AND 1 X 50 UG/HR PATCHES
     Route: 062
  4. DURAGESIC-100 [Suspect]
     Dosage: 1 X 100 UG/HR AND 1 X 75 UG/HR PATCHES
     Route: 062
  5. DURAGESIC-100 [Suspect]
     Indication: BACK PAIN
     Dosage: 2 X 100 UG/HR PATCHES
     Route: 062
  6. FENTANYL TRANSDERMAL SYSTEM [Suspect]
     Indication: BACK PAIN
     Route: 062
  7. UNKNOWN MEDICATION [Interacting]
     Indication: DRUG USE FOR UNKNOWN INDICATION
     Route: 065
  8. UNKNOWN MEDICATION [Suspect]
     Indication: SMOKER
     Route: 065
  9. BACLOFEN [Concomitant]
     Indication: MUSCLE SPASMS
     Route: 048
  10. NEURONTIN [Concomitant]
     Indication: PAIN
     Route: 048
  11. ZANAFLEX [Concomitant]
     Indication: MUSCLE SPASMS
     Route: 048
  12. WELLBUTRIN [Concomitant]
     Indication: DEPRESSION
     Route: 048
  13. UNKNOWN MEDICATION [Concomitant]
     Route: 065

REACTIONS (6)
  - AMNESIA [None]
  - COMA [None]
  - DRUG INTERACTION [None]
  - PRURITUS [None]
  - SOMNOLENCE [None]
  - THERMAL BURN [None]
